FAERS Safety Report 4603144-4 (Version None)
Quarter: 2005Q1

REPORT INFORMATION
  Report Type: 
  Country: None (occurrence: None)
  Receive Date: 20050307
  Receipt Date: 20050221
  Transmission Date: 20050727
  Serious: Yes (Disabling)
  Sender: FDA-Public Use
  Company Number: HQ4885128OCT2002

PATIENT
  Age: 70 Year
  Sex: Female

DRUGS (6)
  1. SIROLIMUS                 (SIROLIMUS) [Suspect]
     Indication: PROPHYLAXIS AGAINST TRANSPLANT REJECTION
     Dosage: 8 MG 1X PER 1 DAY; ORAL
     Route: 048
     Dates: start: 19990217, end: 20021202
  2. RAMIPRIL [Suspect]
     Dates: start: 20021021, end: 20021029
  3. PREDNISONE [Concomitant]
  4. GEMFIBROZIL [Concomitant]
  5. PRAVASTATIN [Concomitant]
  6. CALCITRIOL [Concomitant]

REACTIONS (5)
  - ANGIONEUROTIC OEDEMA [None]
  - BLOOD CHOLESTEROL INCREASED [None]
  - HYPERTENSION [None]
  - RETINAL ARTERY THROMBOSIS [None]
  - RETINAL DEGENERATION [None]
